FAERS Safety Report 20672400 (Version 1)
Quarter: 2022Q2

REPORT INFORMATION
  Report Type: Other
  Country: DE (occurrence: None)
  Receive Date: 20220405
  Receipt Date: 20220405
  Transmission Date: 20220721
  Serious: Yes (Other)
  Sender: FDA-Public Use
  Company Number: DE-ROCHE-2591045

PATIENT
  Age: 59 Year
  Sex: Female
  Weight: 73 kg

DRUGS (34)
  1. OCRELIZUMAB [Suspect]
     Active Substance: OCRELIZUMAB
     Indication: Relapsing multiple sclerosis
     Route: 042
     Dates: start: 20180508, end: 20180523
  2. OCRELIZUMAB [Suspect]
     Active Substance: OCRELIZUMAB
     Route: 042
     Dates: start: 20181112
  3. PANTOPRAZOLE SODIUM [Concomitant]
     Active Substance: PANTOPRAZOLE SODIUM
     Indication: Prophylaxis
     Route: 048
  4. PREDNISOLONE [Concomitant]
     Active Substance: PREDNISOLONE
     Indication: Prophylaxis
     Route: 042
     Dates: start: 20181112, end: 20181112
  5. PREDNISOLONE [Concomitant]
     Active Substance: PREDNISOLONE
     Route: 042
     Dates: start: 20190514, end: 20190514
  6. NABIXIMOLS [Concomitant]
     Active Substance: NABIXIMOLS
     Indication: Muscle spasticity
     Dates: start: 20130422
  7. POTASSIUM CHLORIDE [Concomitant]
     Active Substance: POTASSIUM CHLORIDE
     Indication: Renal failure
     Route: 048
  8. PREDNISOLONE [Concomitant]
     Active Substance: PREDNISOLONE
     Indication: Prophylaxis
     Route: 042
     Dates: start: 20180523, end: 20180523
  9. PREDNISOLONE [Concomitant]
     Active Substance: PREDNISOLONE
     Route: 042
     Dates: start: 20180508, end: 20180508
  10. LORAZEPAM [Concomitant]
     Active Substance: LORAZEPAM
     Dosage: DEFINITION OF THE INTERVAL: AS REQUIRED
     Dates: start: 20180725
  11. METHOCARBAMOL [Concomitant]
     Active Substance: METHOCARBAMOL
     Indication: Muscle spasticity
     Route: 048
  12. TORSEMIDE [Concomitant]
     Active Substance: TORSEMIDE
     Indication: Renal failure
     Route: 048
  13. NEUPRO [Concomitant]
     Active Substance: ROTIGOTINE
     Indication: Restless legs syndrome
     Route: 062
     Dates: start: 20180306
  14. ZOPICLONE [Concomitant]
     Active Substance: ZOPICLONE
     Dosage: DEFINITION OF THE INTERVAL: AS REQUIRED
     Route: 048
     Dates: start: 20181105
  15. FERROUS GLYCINE SULFATE [Concomitant]
     Active Substance: FERROUS GLYCINE SULFATE
     Indication: Iron deficiency
     Route: 048
     Dates: start: 20190805
  16. TIZANIDINE [Concomitant]
     Active Substance: TIZANIDINE
     Indication: Restless legs syndrome
     Dosage: DEFINITION OF THE INTERVAL: AS REQUIRED
     Route: 048
     Dates: start: 20140519
  17. BENSERAZIDE\LEVODOPA [Concomitant]
     Active Substance: BENSERAZIDE\LEVODOPA
     Indication: Restless legs syndrome
     Dosage: DEFINITION OF THE INTERVAL: AS REQUIRED
     Route: 048
     Dates: start: 20180219
  18. PROLIA [Concomitant]
     Active Substance: DENOSUMAB
     Indication: Osteoporosis
     Route: 058
  19. PROGESTERONE [Concomitant]
     Active Substance: PROGESTERONE
     Route: 048
  20. SPIRONOLACTONE [Concomitant]
     Active Substance: SPIRONOLACTONE
     Indication: Renal failure
     Route: 048
  21. BISACODYL [Concomitant]
     Active Substance: BISACODYL
     Indication: Constipation
     Route: 048
  22. CHOLECALCIFEROL [Concomitant]
     Active Substance: CHOLECALCIFEROL
     Indication: Vitamin D deficiency
     Route: 048
     Dates: start: 20100413
  23. REQUIP [Concomitant]
     Active Substance: ROPINIROLE HYDROCHLORIDE
     Indication: Restless legs syndrome
     Route: 048
     Dates: start: 20181017, end: 201811
  24. VIVEO [Concomitant]
     Indication: Muscle spasticity
     Route: 048
     Dates: start: 20080612
  25. TERBINAFINE [Concomitant]
     Active Substance: TERBINAFINE
     Route: 048
  26. AERIUS [Concomitant]
     Indication: Prophylaxis
     Route: 048
     Dates: start: 20190513, end: 20190515
  27. AERIUS [Concomitant]
     Route: 048
     Dates: start: 20181111, end: 20181113
  28. AERIUS [Concomitant]
     Route: 048
     Dates: start: 20180522, end: 20180524
  29. AERIUS [Concomitant]
     Route: 048
     Dates: start: 20180507, end: 20180509
  30. RANITIDINE HYDROCHLORIDE [Concomitant]
     Active Substance: RANITIDINE HYDROCHLORIDE
     Indication: Prophylaxis
     Route: 048
     Dates: start: 20180507, end: 20180509
  31. RANITIDINE HYDROCHLORIDE [Concomitant]
     Active Substance: RANITIDINE HYDROCHLORIDE
     Route: 048
     Dates: start: 20190513, end: 20190515
  32. RANITIDINE HYDROCHLORIDE [Concomitant]
     Active Substance: RANITIDINE HYDROCHLORIDE
     Route: 048
     Dates: start: 20180522, end: 20180524
  33. RANITIDINE HYDROCHLORIDE [Concomitant]
     Active Substance: RANITIDINE HYDROCHLORIDE
     Route: 048
     Dates: start: 20181111, end: 20181113
  34. NOVALGIN (METAMIZOLE SODIUM) [Concomitant]
     Active Substance: METAMIZOLE SODIUM
     Indication: Pain
     Route: 048

REACTIONS (9)
  - Dermatitis contact [Unknown]
  - Osteonecrosis [Not Recovered/Not Resolved]
  - Chondropathy [Not Recovered/Not Resolved]
  - Osteoarthritis [Unknown]
  - Spinal osteoarthritis [Not Recovered/Not Resolved]
  - Enchondromatosis [Unknown]
  - Middle insomnia [Unknown]
  - Infection susceptibility increased [Not Recovered/Not Resolved]
  - Bronchitis [Recovered/Resolved]

NARRATIVE: CASE EVENT DATE: 20190401
